FAERS Safety Report 12020304 (Version 1)
Quarter: 2016Q1

REPORT INFORMATION
  Report Type: Report from Study
  Country: US (occurrence: US)
  Receive Date: 20160206
  Receipt Date: 20160206
  Transmission Date: 20160526
  Serious: Yes (Death)
  Sender: FDA-Public Use
  Company Number: US-ACCORD-037566

PATIENT

DRUGS (3)
  1. ETOPOSIDE. [Suspect]
     Active Substance: ETOPOSIDE
     Indication: LUNG SQUAMOUS CELL CARCINOMA STAGE II
     Dosage: RECEIVED IN 1 CYCLE OF 2ND LINE CHEMOREGIMEN
  2. DOCETAXEL. [Suspect]
     Active Substance: DOCETAXEL
     Indication: LUNG SQUAMOUS CELL CARCINOMA STAGE II
     Dosage: 1ST LINE THERAPY?DOCETAXEL 37.5 MG/M2 (C1),?DOCETAXEL 55 MG/M2 (C2),?DOCETAXEL 75 MG/M2 (C3)
  3. CARBOPLATIN. [Suspect]
     Active Substance: CARBOPLATIN
     Indication: LUNG SQUAMOUS CELL CARCINOMA STAGE II
     Dosage: 1 ST LINE?CARBOPLATIN AUC 5 (C1),?CARBOPLATIN AUC 5 (C2),?CARBOPLATIN AUC 5 (C3)

REACTIONS (2)
  - Sepsis [Fatal]
  - Neutropenia [Fatal]
